FAERS Safety Report 5851964-0 (Version None)
Quarter: 2008Q3

REPORT INFORMATION
  Report Type: 
  Country: None (occurrence: None)
  Receive Date: 20080820
  Receipt Date: 20080808
  Transmission Date: 20090109
  Serious: Yes (Other)
  Sender: FDA-Public Use
  Company Number: US-PFIZER INC-2008026096

PATIENT
  Sex: Female

DRUGS (14)
  1. LYRICA [Suspect]
     Indication: FIBROMYALGIA
     Dates: start: 20080101, end: 20080101
  2. ALEVE [Concomitant]
  3. PLAVIX [Concomitant]
  4. METOPROLOL TARTRATE [Concomitant]
  5. LEVOTHYROXINE SODIUM [Concomitant]
  6. PHENYTOIN [Concomitant]
  7. CRESTOR [Concomitant]
  8. PRILOSEC [Concomitant]
  9. ACETYLSALICYLIC ACID SRT [Concomitant]
  10. TRAZODONE HCL [Concomitant]
  11. HYDROCODONE BITARTRATE + ACETAMINOPHEN [Concomitant]
  12. KEPPRA [Concomitant]
  13. ALPRAZOLAM [Concomitant]
  14. TEMAZEPAM [Concomitant]

REACTIONS (6)
  - ACTIVITIES OF DAILY LIVING IMPAIRED [None]
  - ASTHENIA [None]
  - FEELING ABNORMAL [None]
  - GAIT DISTURBANCE [None]
  - THINKING ABNORMAL [None]
  - VISION BLURRED [None]
